FAERS Safety Report 9270162 (Version 1)
Quarter: 2013Q2

REPORT INFORMATION
  Report Type: Report from Study
  Country: US (occurrence: US)
  Receive Date: 20130503
  Receipt Date: 20130503
  Transmission Date: 20140414
  Serious: Yes (Hospitalization)
  Sender: FDA-Public Use
  Company Number: US-GLAXOSMITHKLINE-A1022230A

PATIENT
  Age: 52 Year
  Sex: Male
  Weight: 116.6 kg

DRUGS (3)
  1. LAPATINIB [Suspect]
     Indication: HEAD AND NECK CANCER
     Dosage: 1000MG PER DAY
     Route: 048
     Dates: start: 20130415
  2. CARBOPLATIN [Suspect]
     Indication: HEAD AND NECK CANCER
     Dates: start: 20130415
  3. PACLITAXEL [Suspect]
     Indication: HEAD AND NECK CANCER
     Dates: start: 20130415

REACTIONS (1)
  - Chest pain [Unknown]
